FAERS Safety Report 7353623-4 (Version None)
Quarter: 2011Q1

REPORT INFORMATION
  Report Type: 
  Country: None (occurrence: None)
  Receive Date: 20110310
  Receipt Date: 20110310
  Transmission Date: 20110831
  Serious: Yes (Disabling)
  Sender: FDA-Public Use
  Company Number: None

PATIENT
  Age: 63 Year
  Sex: Female
  Weight: 53.0709 kg

DRUGS (1)
  1. RECLAST [Suspect]
     Indication: BONE DISORDER
     Dosage: INFUSION 1 X YR. IN HOSPITAL
     Route: 042
     Dates: start: 20101001

REACTIONS (2)
  - TOOTH DISORDER [None]
  - GINGIVAL DISORDER [None]
